FAERS Safety Report 22291963 (Version 1)
Quarter: 2023Q2

REPORT INFORMATION
  Report Type: Spontaneous
  Country: DE (occurrence: DE)
  Receive Date: 20230508
  Receipt Date: 20230508
  Transmission Date: 20230721
  Serious: No
  Sender: FDA-Public Use
  Company Number: DE-ALKEM LABORATORIES LIMITED-DE-ALKEM-2023-00169

PATIENT
  Sex: Male
  Weight: 83 kg

DRUGS (2)
  1. ROSUVASTATIN [Suspect]
     Active Substance: ROSUVASTATIN
     Indication: Hypercholesterolaemia
     Dosage: 10 MILLIGRAMS, QD (EVERY 1 DAY)
     Route: 048
     Dates: start: 2020
  2. EZETIMIBE [Suspect]
     Active Substance: EZETIMIBE
     Indication: Hypercholesterolaemia
     Dosage: 10 MILLIGRAMS, QD (EVERY 1 DAY)
     Route: 048
     Dates: start: 2020

REACTIONS (1)
  - Myalgia [Recovered/Resolved]
